FAERS Safety Report 7341389-3 (Version None)
Quarter: 2011Q1

REPORT INFORMATION
  Report Type: 
  Country: None (occurrence: None)
  Receive Date: 20110309
  Receipt Date: 20110302
  Transmission Date: 20110831
  Serious: Yes (Hospitalization)
  Sender: FDA-Public Use
  Company Number: JP-MERCK-1007USA02233

PATIENT
  Age: 77 Year
  Sex: Female
  Weight: 54 kg

DRUGS (3)
  1. BLOPRESS [Concomitant]
     Indication: HYPERTENSION
     Dosage: MORNING
     Route: 048
  2. SPIRONOLACTONE [Concomitant]
     Indication: HYPERTENSION
     Dosage: MORNING
     Route: 048
  3. JANUVIA [Suspect]
     Indication: DIABETES MELLITUS
     Dosage: MORNING
     Route: 048
     Dates: start: 20100518, end: 20100624

REACTIONS (2)
  - NEPHROGENIC ANAEMIA [None]
  - RENAL FAILURE ACUTE [None]
